FAERS Safety Report 7935311-6 (Version None)
Quarter: 2011Q4

REPORT INFORMATION
  Report Type: 
  Country: None (occurrence: None)
  Receive Date: 20111122
  Receipt Date: 20111115
  Transmission Date: 20120403
  Serious: Yes (Other)
  Sender: FDA-Public Use
  Company Number: US-BAYER-2011-110830

PATIENT
  Age: 42 Year
  Sex: Female
  Weight: 82 kg

DRUGS (1)
  1. CITRACAL PETITES [Suspect]
     Dosage: 1 DF, QD
     Route: 048
     Dates: start: 20111112, end: 20111114

REACTIONS (1)
  - CHOKING [None]
